FAERS Safety Report 17260192 (Version 1)
Quarter: 2020Q1

REPORT INFORMATION
  Report Type: Spontaneous
  Country: DE (occurrence: DE)
  Receive Date: 20200111
  Receipt Date: 20200111
  Transmission Date: 20200409
  Serious: Yes (Hospitalization)
  Sender: FDA-Public Use
  Company Number: NVSC2020DE004538

PATIENT
  Sex: Male
  Weight: 72 kg

DRUGS (3)
  1. PEGFILGRASTIM [Suspect]
     Active Substance: PEGFILGRASTIM
     Dosage: 6 MG, CYCLIC
     Route: 065
     Dates: start: 20190810
  2. PEGFILGRASTIM [Suspect]
     Active Substance: PEGFILGRASTIM
     Indication: PRODUCT USED FOR UNKNOWN INDICATION
     Dosage: 6 MG, CYCLIC
     Route: 065
     Dates: start: 20190710
  3. PEGFILGRASTIM [Suspect]
     Active Substance: PEGFILGRASTIM
     Dosage: 6 MG, CYCLIC
     Route: 065
     Dates: start: 20190727

REACTIONS (1)
  - Staphylococcal bacteraemia [Recovered/Resolved]

NARRATIVE: CASE EVENT DATE: 20190818
